FAERS Safety Report 7119995-0 (Version None)
Quarter: 2010Q4

REPORT INFORMATION
  Report Type: 
  Country: None (occurrence: None)
  Receive Date: 20101123
  Receipt Date: 20101115
  Transmission Date: 20110411
  Serious: Yes (Hospitalization)
  Sender: FDA-Public Use
  Company Number: TW-BAXTER-2010BH028322

PATIENT
  Age: 16 Year

DRUGS (1)
  1. DIANEAL [Suspect]
     Indication: PERITONEAL DIALYSIS
     Route: 033
     Dates: start: 20051101, end: 20100101

REACTIONS (2)
  - FUNGAL PERITONITIS [None]
  - GASTROINTESTINAL INFECTION [None]
